FAERS Safety Report 13572413 (Version 1)
Quarter: 2017Q2

REPORT INFORMATION
  Report Type: Spontaneous
  Country: US (occurrence: US)
  Receive Date: 20170523
  Receipt Date: 20170523
  Transmission Date: 20170830
  Serious: No
  Sender: FDA-Public Use
  Company Number: US-JNJFOC-20170422740

PATIENT
  Age: 76 Year
  Sex: Female
  Weight: 60 kg

DRUGS (15)
  1. FUROSEMIDE. [Concomitant]
     Active Substance: FUROSEMIDE
  2. OXYBUTYNIN [Concomitant]
     Active Substance: OXYBUTYNIN
  3. AZITHROMYCIN ANHYDROUS. [Concomitant]
     Active Substance: AZITHROMYCIN ANHYDROUS
  4. TRAMADOL. [Concomitant]
     Active Substance: TRAMADOL
  5. VITAMIN D [Concomitant]
     Active Substance: CHOLECALCIFEROL
  6. GABAPENTIN. [Concomitant]
     Active Substance: GABAPENTIN
  7. DIOVAN [Concomitant]
     Active Substance: VALSARTAN
  8. ALPRAZOLAM. [Concomitant]
     Active Substance: ALPRAZOLAM
  9. CALCIUM [Concomitant]
     Active Substance: CALCIUM
  10. DOXEPIN [Concomitant]
     Active Substance: DOXEPIN
  11. VENLAFAXINE [Concomitant]
     Active Substance: VENLAFAXINE HYDROCHLORIDE
  12. MELOXICAM. [Concomitant]
     Active Substance: MELOXICAM
  13. IMBRUVICA [Suspect]
     Active Substance: IBRUTINIB
     Indication: PRODUCT USED FOR UNKNOWN INDICATION
     Route: 048
     Dates: start: 20141008
  14. KETOCONAZOLE. [Concomitant]
     Active Substance: KETOCONAZOLE
  15. VALTREX [Concomitant]
     Active Substance: VALACYCLOVIR HYDROCHLORIDE

REACTIONS (3)
  - Off label use [Not Recovered/Not Resolved]
  - Dental operation [Unknown]
  - Incorrect dose administered [Not Recovered/Not Resolved]

NARRATIVE: CASE EVENT DATE: 20141008
